FAERS Safety Report 20492485 (Version 1)
Quarter: 2022Q1

REPORT INFORMATION
  Report Type: Spontaneous
  Country: US (occurrence: US)
  Receive Date: 20220219
  Receipt Date: 20220219
  Transmission Date: 20220423
  Serious: Yes (Hospitalization)
  Sender: FDA-Public Use
  Company Number: US-UNITED THERAPEUTICS-UNT-2022-003474

PATIENT
  Sex: Male

DRUGS (1)
  1. UNITUXIN [Suspect]
     Active Substance: DINUTUXIMAB
     Indication: Neuroblastoma
     Dosage: 17.5 MG/KG DAILY X 4, CYCLICAL
     Route: 041

REACTIONS (1)
  - Cough [Not Recovered/Not Resolved]
